FAERS Safety Report 9345646 (Version 1)
Quarter: 2013Q2

REPORT INFORMATION
  Report Type: Spontaneous
  Country: US (occurrence: US)
  Receive Date: 20130613
  Receipt Date: 20130613
  Transmission Date: 20140414
  Serious: No
  Sender: FDA-Public Use
  Company Number: US-BAYER-2013-070011

PATIENT
  Age: 72 Year
  Sex: Female
  Weight: 69.39 kg

DRUGS (9)
  1. ALEVE CAPLET [Suspect]
     Indication: ARTHRITIS
     Dosage: 1 DF, QD
     Route: 048
     Dates: start: 20130530, end: 20130602
  2. DILTIAZEM ER [Concomitant]
     Dosage: 180 MG, UNK
  3. LABETALOL HCL [Concomitant]
     Dosage: 200 MG, UNK
  4. CHLORTHALIDONE [Concomitant]
     Dosage: 25 MG, UNK
  5. LORAZEPAM [Concomitant]
     Dosage: 1 MG, UNK
  6. LOSARTAN POTASSIUM [Concomitant]
     Dosage: 50 MG, UNK
  7. CENTRUM SILVER [Concomitant]
  8. VITAMIN E [Concomitant]
  9. VITAMIN C [Concomitant]

REACTIONS (3)
  - Palpitations [Recovered/Resolved]
  - Dry mouth [Not Recovered/Not Resolved]
  - Malaise [Not Recovered/Not Resolved]
